FAERS Safety Report 6371916-4 (Version None)
Quarter: 2009Q3

REPORT INFORMATION
  Report Type: 
  Country: None (occurrence: None)
  Receive Date: 20090918
  Receipt Date: 20090918
  Transmission Date: 20100115
  Serious: Yes (Life-Threatening, Hospitalization)
  Sender: FDA-Public Use
  Company Number: None

PATIENT
  Age: 58 Year
  Sex: Male
  Weight: 102.0593 kg

DRUGS (1)
  1. DIGOXIN [Suspect]
     Dosage: 0.25 1 DAY
     Dates: start: 20030401, end: 20090717

REACTIONS (10)
  - DIZZINESS [None]
  - FEELING COLD [None]
  - HYPERTENSION [None]
  - LOSS OF CONSCIOUSNESS [None]
  - MUSCULAR WEAKNESS [None]
  - OEDEMA PERIPHERAL [None]
  - PARAESTHESIA [None]
  - RENAL FAILURE [None]
  - SKIN DISCOLOURATION [None]
  - THERAPEUTIC AGENT TOXICITY [None]
